FAERS Safety Report 8624576-3 (Version None)
Quarter: 2012Q3

REPORT INFORMATION
  Report Type: 
  Country: None (occurrence: None)
  Receive Date: 20120827
  Receipt Date: 20120822
  Transmission Date: 20120928
  Serious: Yes (Other)
  Sender: FDA-Public Use
  Company Number: US-PFIZER INC-2012206448

PATIENT
  Age: 50 Year
  Sex: Female

DRUGS (6)
  1. MS CONTIN [Suspect]
     Dosage: 30 MG, 2X/DAY
  2. FLEXERIL [Suspect]
     Dosage: UNK
  3. TRAMADOL HCL [Suspect]
     Dosage: 50 MG, EVERY 4 HRS
  4. AVINZA [Suspect]
     Dosage: 60 MG, 1X/DAY
  5. MORPHINE [Suspect]
     Dosage: 15 MG, EVERY 4 HRS
  6. SKELAXIN [Suspect]
     Dosage: UNK

REACTIONS (4)
  - LOSS OF CONSCIOUSNESS [None]
  - ANKLE FRACTURE [None]
  - MEMORY IMPAIRMENT [None]
  - FEELING ABNORMAL [None]
